FAERS Safety Report 20215677 (Version 6)
Quarter: 2022Q2

REPORT INFORMATION
  Report Type: Other
  Country: QA (occurrence: None)
  Receive Date: 20211222
  Receipt Date: 20220408
  Transmission Date: 20220721
  Serious: Yes (Other)
  Sender: FDA-Public Use
  Company Number: QA-ROCHE-2979387

PATIENT
  Age: 31 Year
  Sex: Male
  Weight: 67 kg

DRUGS (3)
  1. OCRELIZUMAB [Suspect]
     Active Substance: OCRELIZUMAB
     Indication: Relapsing-remitting multiple sclerosis
     Dosage: ON 28/JUN/2021. HE RECEIVED THE MOST RECENT DOSE OF STUDY DRUG OCRELIZUMAB (600 MG) PRIOR TO TO ADVE
     Route: 042
     Dates: start: 20201228
  2. ACETAMINOPHEN [Concomitant]
     Active Substance: ACETAMINOPHEN
     Route: 042
     Dates: start: 20220328, end: 20220328
  3. METHYLPREDNISOLONE [Concomitant]
     Active Substance: METHYLPREDNISOLONE
     Route: 042
     Dates: start: 20220328, end: 20220328

REACTIONS (1)
  - Tuberculosis [Not Recovered/Not Resolved]

NARRATIVE: CASE EVENT DATE: 20211122
